FAERS Safety Report 9324030 (Version 2)
Quarter: 2013Q2

REPORT INFORMATION
  Report Type: Spontaneous
  Country: FR (occurrence: FR)
  Receive Date: 20130603
  Receipt Date: 20130620
  Transmission Date: 20140414
  Serious: Yes (Other)
  Sender: FDA-Public Use
  Company Number: FR-VERTEX PHARMACEUTICALS INC-2013-000563

PATIENT
  Age: 22 Year
  Sex: Female

DRUGS (13)
  1. VX-770 [Suspect]
     Indication: CYSTIC FIBROSIS
     Dosage: 150 MG, BID
     Route: 048
     Dates: start: 20120613
  2. ZITHROMAX [Concomitant]
     Dosage: 250 MG, QD
  3. EUROBIOL [Concomitant]
     Dosage: 25000 IU, QD
  4. SYMBICORT [Concomitant]
     Dosage: 4 DF, QD
  5. XOLAIR [Concomitant]
     Dosage: 300 MG/MONTH
  6. PULMOZYME [Concomitant]
     Dosage: 2.5 MG, QD
  7. TOBI [Concomitant]
     Dosage: 60 MG, QD, 28 DAYS ON, 28 DAYS OFF
  8. TOCO [Concomitant]
     Dosage: 1 DF, QD
  9. IDEOS [Concomitant]
     Dosage: 2 DF, QD
  10. PARIET [Concomitant]
     Dosage: 10 MG, PRN
  11. NOVONORM [Concomitant]
     Dosage: 0.5 MG, TID
  12. FORLAX [Concomitant]
     Dosage: 1 DF, PRN
  13. VENTOLINE [Concomitant]
     Dosage: 2 DF, PRN

REACTIONS (5)
  - Breast enlargement [Recovered/Resolved]
  - Weight increased [Unknown]
  - Hyperhidrosis [Not Recovered/Not Resolved]
  - Back pain [Not Recovered/Not Resolved]
  - Fat tissue increased [Unknown]
